FAERS Safety Report 18806157 (Version 1)
Quarter: 2021Q1

REPORT INFORMATION
  Report Type: Spontaneous
  Country: CN (occurrence: CN)
  Receive Date: 20210129
  Receipt Date: 20210129
  Transmission Date: 20210419
  Serious: Yes (Hospitalization)
  Sender: FDA-Public Use
  Company Number: CN-BAXTER-2021BAX001853

PATIENT
  Age: 30 Year
  Sex: Female
  Weight: 46 kg

DRUGS (12)
  1. ENDOXAN [Suspect]
     Active Substance: CYCLOPHOSPHAMIDE
     Indication: BREAST CANCER FEMALE
     Dosage: CYCLOPHOSPHAMIDE FOR INJECTION 717 MG + 0.9% SODIUM CHLORIDE INJECTION 500 ML
     Route: 041
     Dates: start: 20210104, end: 20210104
  2. PACLITAXEL. [Suspect]
     Active Substance: PACLITAXEL
     Indication: BREAST CANCER FEMALE
     Dosage: PACLITAXEL FOR INJECTION (ALBUMIN BOUND) 373 MG + 0.9% SODIUM CHLORIDE INJECTION 250 ML
     Route: 041
     Dates: start: 20210104, end: 20210104
  3. 0.9% SODIUM CHLORIDE INJECTION [Suspect]
     Active Substance: SODIUM CHLORIDE
     Indication: MEDICATION DILUTION
     Dosage: CYCLOPHOSPHAMIDE FOR INJECTION 717 MG + 0.9% SODIUM CHLORIDE INJECTION 500 ML
     Route: 041
     Dates: start: 20210104, end: 20210104
  4. 5% GLUCOSE  INJECTION [Suspect]
     Active Substance: DEXTROSE
     Indication: MEDICATION DILUTION
     Dosage: PIRARUBICIN HYDROCHLORIDE POWDER FOR INJECTION 70 MG + 5% GLUCOSE INJECTION 500 ML
     Route: 041
     Dates: start: 20210104, end: 20210104
  5. PACLITAXEL. [Suspect]
     Active Substance: PACLITAXEL
     Dosage: DOSE RE?INTRODUCED, PACLITAXEL FOR INJECTION  + 0.9% SODIUM CHLORIDE INJECTION
     Route: 041
  6. 5% GLUCOSE  INJECTION [Suspect]
     Active Substance: DEXTROSE
     Dosage: DOSE RE?INTRODUCED, PIRARUBICIN HYDROCHLORIDE POWDER FOR INJECTION + 5% GLUCOSE INJECTION
     Route: 041
  7. PIRARUBICIN HYDROCHLORIDE [Suspect]
     Active Substance: PIRARUBICIN HYDROCHLORIDE
     Dosage: DOSE RE?INTRODUCED, PIRARUBICIN HYDROCHLORIDE POWDER FOR INJECTION + 5% GLUCOSE INJECTION
     Route: 041
  8. ENDOXAN [Suspect]
     Active Substance: CYCLOPHOSPHAMIDE
     Dosage: DOSE RE?INTRODUCED, CYCLOPHOSPHAMIDE FOR INJECTION  + 0.9% SODIUM CHLORIDE INJECTION
     Route: 041
  9. 0.9% SODIUM CHLORIDE INJECTION [Suspect]
     Active Substance: SODIUM CHLORIDE
     Dosage: DOSE RE?INTRODUCED, PACLITAXEL FOR INJECTION (ALBUMIN BOUND)  + 0.9% SODIUM CHLORIDE INJECTION
     Route: 041
  10. PIRARUBICIN HYDROCHLORIDE [Suspect]
     Active Substance: PIRARUBICIN HYDROCHLORIDE
     Indication: BREAST CANCER FEMALE
     Dosage: PIRARUBICIN HYDROCHLORIDE POWDER FOR INJECTION 70 MG + 5% GLUCOSE INJECTION 500 ML
     Route: 041
     Dates: start: 20210104, end: 20210104
  11. 0.9% SODIUM CHLORIDE INJECTION [Suspect]
     Active Substance: SODIUM CHLORIDE
     Dosage: PACLITAXEL FOR INJECTION (ALBUMIN BOUND) 373 MG + 0.9% SODIUM CHLORIDE INJECTION 250 ML
     Route: 041
     Dates: start: 20210104, end: 20210104
  12. 0.9% SODIUM CHLORIDE INJECTION [Suspect]
     Active Substance: SODIUM CHLORIDE
     Dosage: DOSE RE?INTRODUCED, CYCLOPHOSPHAMIDE FOR INJECTION + 0.9% SODIUM CHLORIDE INJECTION
     Route: 041

REACTIONS (1)
  - Myelosuppression [Recovering/Resolving]

NARRATIVE: CASE EVENT DATE: 20210111
